FAERS Safety Report 9179870 (Version 1)
Quarter: 2012Q4

REPORT INFORMATION
  Report Type: 
  Country: NL (occurrence: NL)
  Receive Date: 20121029
  Receipt Date: 20121029
  Transmission Date: 20130627
  Serious: Yes (Other)
  Sender: FDA-Public Use
  Company Number: PHHY2012NL096587

PATIENT
  Sex: Female

DRUGS (2)
  1. ZOMETA [Suspect]
     Indication: BREAST CANCER METASTATIC
     Dosage: 4 mg/100ml once per 42 days
     Route: 042
     Dates: start: 20120719
  2. ZOMETA [Suspect]
     Dosage: 4 mg/100ml once per 42 days
     Route: 042
     Dates: start: 20120831, end: 20120831

REACTIONS (1)
  - Osteonecrosis of jaw [Not Recovered/Not Resolved]
